FAERS Safety Report 11247326 (Version 2)
Quarter: 2015Q3

REPORT INFORMATION
  Report Type: Spontaneous
  Country: US (occurrence: US)
  Receive Date: 20150708
  Receipt Date: 20150814
  Transmission Date: 20151125
  Serious: Yes (Hospitalization, Other)
  Sender: FDA-Public Use
  Company Number: US-PFIZER INC-2015222181

PATIENT
  Age: 70 Year
  Sex: Female
  Weight: 90.7 kg

DRUGS (5)
  1. BACLOFEN. [Concomitant]
     Active Substance: BACLOFEN
     Dosage: UNK
  2. LYRICA [Suspect]
     Active Substance: PREGABALIN
     Dosage: 200 MG, 2X/DAY
     Route: 048
  3. PROZAC [Concomitant]
     Active Substance: FLUOXETINE HYDROCHLORIDE
     Dosage: UNK
  4. LYRICA [Suspect]
     Active Substance: PREGABALIN
     Indication: FIBROMYALGIA
     Dosage: 200 MG, 1X/DAY
     Route: 048
  5. XARELTO [Concomitant]
     Active Substance: RIVAROXABAN
     Dosage: UNK

REACTIONS (8)
  - Arthropathy [Unknown]
  - Discomfort [Unknown]
  - Burning sensation [Unknown]
  - Fibromyalgia [Unknown]
  - Pain [Unknown]
  - Arthropathy [Unknown]
  - Drug withdrawal syndrome [Unknown]
  - Neuralgia [Unknown]

NARRATIVE: CASE EVENT DATE: 20150329
